FAERS Safety Report 25652858 (Version 8)
Quarter: 2025Q3

REPORT INFORMATION
  Report Type: Spontaneous
  Country: US (occurrence: US)
  Receive Date: 20250807
  Receipt Date: 20250923
  Transmission Date: 20251020
  Serious: No
  Sender: SANOFI AVENTIS
  Company Number: US-SANOFI-02607270

PATIENT
  Age: 83 Year
  Sex: Male

DRUGS (3)
  1. TOUJEO [Suspect]
     Active Substance: INSULIN GLARGINE
     Indication: Diabetes mellitus
     Dosage: 40-50 UNITS, QD
     Dates: start: 20250723, end: 2025
  2. TOUJEO [Suspect]
     Active Substance: INSULIN GLARGINE
     Dates: start: 2025, end: 2025
  3. TOUJEO [Suspect]
     Active Substance: INSULIN GLARGINE
     Dosage: PRESCRIBED UP TO 80 UNITS, BUT TAKE UP TO 60 UNITS QD
     Dates: start: 2025

REACTIONS (4)
  - Blood glucose increased [Recovering/Resolving]
  - Drug ineffective [Unknown]
  - Off label use [Unknown]
  - Product storage error [Unknown]

NARRATIVE: CASE EVENT DATE: 20250101
